FAERS Safety Report 7114099-5 (Version None)
Quarter: 2010Q4

REPORT INFORMATION
  Report Type: 
  Country: None (occurrence: None)
  Receive Date: 20101119
  Receipt Date: 20101108
  Transmission Date: 20110411
  Serious: Yes (Other)
  Sender: FDA-Public Use
  Company Number: JP-JNJFOC-20101103807

PATIENT
  Age: 42 Year
  Sex: Female

DRUGS (2)
  1. REMICADE [Suspect]
     Indication: CROHN'S DISEASE
     Route: 042
  2. REMICADE [Suspect]
     Dosage: TOTAL OF 2 INFUSIONS
     Route: 042

REACTIONS (1)
  - LYMPH NODE TUBERCULOSIS [None]
